FAERS Safety Report 9687867 (Version 2)
Quarter: 2014Q1

REPORT INFORMATION
  Report Type: Spontaneous
  Country: IE (occurrence: IE)
  Receive Date: 20131114
  Receipt Date: 20140204
  Transmission Date: 20141002
  Serious: Yes (Other)
  Sender: FDA-Public Use
  Company Number: IE-JNJFOC-20131105632

PATIENT
  Sex: Male

DRUGS (5)
  1. HALDOL [Suspect]
     Indication: SCHIZOPHRENIA
     Dosage: 150MG INTRAMUSCULAR TO ALTERNATE BUTTOCKS
     Route: 030
     Dates: start: 200809
  2. DALMANE [Concomitant]
     Dosage: NIGHT
     Route: 030
  3. EMCOR [Concomitant]
     Route: 030
  4. LEXAPRO [Concomitant]
     Route: 030
  5. MIRTAZAPINE [Concomitant]
     Dosage: NIGHT
     Route: 030

REACTIONS (2)
  - Scar [Unknown]
  - Procedural complication [Unknown]
